FAERS Safety Report 18389715 (Version 1)
Quarter: 2020Q4

REPORT INFORMATION
  Report Type: Spontaneous
  Country: CN (occurrence: CN)
  Receive Date: 20201015
  Receipt Date: 20201015
  Transmission Date: 20210114
  Serious: Yes (Other)
  Sender: FDA-Public Use
  Company Number: CN-JNJFOC-20201021547

PATIENT
  Age: 50 Year
  Sex: Female
  Weight: 55 kg

DRUGS (1)
  1. RISPERDAL [Suspect]
     Active Substance: RISPERIDONE
     Indication: SCHIZOPHRENIA
     Route: 048
     Dates: start: 20200903, end: 20201012

REACTIONS (3)
  - Blood prolactin increased [Unknown]
  - Hypothyroidism [Unknown]
  - Hyperuricaemia [Unknown]

NARRATIVE: CASE EVENT DATE: 20201009
